FAERS Safety Report 22256723 (Version 1)
Quarter: 2023Q2

REPORT INFORMATION
  Report Type: Spontaneous
  Country: IN (occurrence: IN)
  Receive Date: 20230426
  Receipt Date: 20230426
  Transmission Date: 20230722
  Serious: Yes (Other)
  Sender: FDA-Public Use
  Company Number: IN-SA-SAC20230424000839

PATIENT
  Age: 8 Year
  Sex: Female

DRUGS (3)
  1. ALLEGRA [Suspect]
     Active Substance: FEXOFENADINE HYDROCHLORIDE
     Indication: Rhinitis allergic
     Dosage: 5 ML, BID
     Route: 048
     Dates: start: 20230412, end: 20230413
  2. AZITHROMYCIN [Concomitant]
     Active Substance: AZITHROMYCIN
     Indication: Respiratory disorder
     Dosage: 250 MG, QD
     Route: 048
  3. AMBROXOL HYDROCHLORIDE;GUAIFENESIN;LEVOSALBUTAMOL [Concomitant]
     Indication: Bronchitis
     Dosage: 5 ML
     Route: 048

REACTIONS (2)
  - Haematemesis [Recovered/Resolved]
  - Epistaxis [Recovered/Resolved]

NARRATIVE: CASE EVENT DATE: 20230412
